FAERS Safety Report 7628173-8 (Version None)
Quarter: 2011Q3

REPORT INFORMATION
  Report Type: 
  Country: None (occurrence: None)
  Receive Date: 20110720
  Receipt Date: 20110720
  Transmission Date: 20111222
  Serious: No
  Sender: FDA-Public Use
  Company Number: None

PATIENT
  Sex: Female
  Weight: 51.8 kg

DRUGS (2)
  1. CYANOCOBALAMIN [Suspect]
     Indication: ASTHENIA
     Dates: start: 20110601
  2. CYANOCOBALAMIN [Suspect]
     Indication: ASTHENIA
     Dates: start: 20110501

REACTIONS (4)
  - PRODUCT QUALITY ISSUE [None]
  - FEELING ABNORMAL [None]
  - MALAISE [None]
  - ASTHENIA [None]
